FAERS Safety Report 24217309 (Version 2)
Quarter: 2025Q3

REPORT INFORMATION
  Report Type: Spontaneous
  Country: EU (occurrence: EU)
  Receive Date: 20240816
  Receipt Date: 20250903
  Transmission Date: 20251021
  Serious: Yes (Life-Threatening, Hospitalization)
  Sender: MYLAN
  Company Number: EU-MYLANLABS-2024M1074831

PATIENT
  Age: 16 Year
  Sex: Male

DRUGS (2)
  1. AMIODARONE [Suspect]
     Active Substance: AMIODARONE
     Indication: Ventricular tachycardia
  2. ACTIVATED CHARCOAL [Suspect]
     Active Substance: ACTIVATED CHARCOAL
     Indication: Ventricular tachycardia

REACTIONS (2)
  - Drug ineffective [Unknown]
  - Bradycardia [Recovered/Resolved]
